FAERS Safety Report 18581036 (Version 8)
Quarter: 2022Q4

REPORT INFORMATION
  Report Type: Report from Study
  Country: US (occurrence: US)
  Receive Date: 20201204
  Receipt Date: 20221003
  Transmission Date: 20230112
  Serious: Yes (Other)
  Sender: FDA-Public Use
  Company Number: US-NOVARTISPH-NVSC2020US319651

PATIENT
  Age: 81 Year
  Sex: Female
  Weight: 59.41 kg

DRUGS (7)
  1. ENTRESTO [Suspect]
     Active Substance: SACUBITRIL\VALSARTAN
     Indication: Cardiac failure
     Dosage: UNK UNK, BID (24/26 MG)
     Route: 048
     Dates: start: 20201124
  2. ENTRESTO [Suspect]
     Active Substance: SACUBITRIL\VALSARTAN
     Indication: Cardiac failure chronic
     Dosage: UNK UNK, BID (24-26MG)
     Route: 048
     Dates: start: 20201124
  3. ENTRESTO [Suspect]
     Active Substance: SACUBITRIL\VALSARTAN
     Indication: Chronic left ventricular failure
     Dosage: UNK UNK, BID (24-26MG)
     Route: 048
     Dates: start: 20201124
  4. ENTRESTO [Suspect]
     Active Substance: SACUBITRIL\VALSARTAN
     Dosage: UNK UNK, BID (24-26MG)
     Route: 048
     Dates: start: 20201124
  5. ENTRESTO [Suspect]
     Active Substance: SACUBITRIL\VALSARTAN
     Dosage: UNK UNK, BID (24-26MG)
     Route: 048
     Dates: start: 20201124
  6. ENTRESTO [Suspect]
     Active Substance: SACUBITRIL\VALSARTAN
     Dosage: UNK UNK, BID (24-26MG)
     Route: 048
     Dates: start: 20201124
  7. METHIMAZOLE [Concomitant]
     Active Substance: METHIMAZOLE
     Indication: Product used for unknown indication
     Dosage: UNK UNK, UNKNOWN
     Route: 065

REACTIONS (15)
  - Cardiac failure [Unknown]
  - Oropharyngeal discomfort [Unknown]
  - Angiopathy [Unknown]
  - Dizziness [Unknown]
  - Plantar fasciitis [Unknown]
  - Osteoporosis [Unknown]
  - Fall [Unknown]
  - Lower limb fracture [Unknown]
  - Arthritis [Unknown]
  - Myalgia [Unknown]
  - Thyroid disorder [Unknown]
  - Arthralgia [Unknown]
  - Patella fracture [Unknown]
  - Blood pressure decreased [Unknown]
  - Hypotension [Unknown]

NARRATIVE: CASE EVENT DATE: 20210801
